FAERS Safety Report 18463884 (Version 2)
Quarter: 2020Q4

REPORT INFORMATION
  Report Type: Spontaneous
  Country: JP (occurrence: JP)
  Receive Date: 20201104
  Receipt Date: 20201119
  Transmission Date: 20210114
  Serious: No
  Sender: FDA-Public Use
  Company Number: JP-ASTRAZENECA-2020SF42301

PATIENT
  Age: 53 Year
  Sex: Female

DRUGS (2)
  1. LYNPARZA [Suspect]
     Active Substance: OLAPARIB
     Indication: BREAST CANCER
     Dosage: DOSE UNKNOWN
     Route: 048
  2. LYNPARZA [Suspect]
     Active Substance: OLAPARIB
     Indication: BREAST CANCER
     Dosage: DOSE UNKNOWN
     Route: 048

REACTIONS (2)
  - Nausea [Unknown]
  - Anaemia [Unknown]
